FAERS Safety Report 8128885-6 (Version None)
Quarter: 2012Q1

REPORT INFORMATION
  Report Type: 
  Country: None (occurrence: None)
  Receive Date: 20120210
  Receipt Date: 20120208
  Transmission Date: 20120608
  Serious: Yes (Other)
  Sender: FDA-Public Use
  Company Number: US-PFIZER INC-2003024539

PATIENT
  Sex: Female
  Weight: 52.154 kg

DRUGS (15)
  1. WARFARIN SODIUM [Concomitant]
     Dosage: 2 TO 3 MG DAILY
  2. PROPRANOLOL [Concomitant]
     Indication: CHEST PAIN
     Dosage: 40 MG, 3X/DAY
     Route: 048
  3. PROCARDIA [Concomitant]
     Dosage: 20 MG, 3X/DAY
  4. XALATAN [Concomitant]
     Dosage: 1 GTT, IN THE RIGHT EYE NIGHTLY
     Route: 047
  5. ACETYLSALICYLIC ACID SRT [Concomitant]
     Dosage: 81 MG, DAILY
  6. LORAZEPAM [Concomitant]
     Dosage: HALF TO ONE TABLET, 2X/DAY
  7. ATIVAN [Concomitant]
     Indication: FEAR
  8. NITROGLYCERIN [Suspect]
     Indication: ILL-DEFINED DISORDER
     Dosage: UNK
     Route: 062
  9. BETA-SITOSTEROL/DANSHEN/GARLIC/RED YEAST RICE [Concomitant]
     Dosage: 600 MG, 2X/DAY
  10. BUTALBITAL [Concomitant]
     Dosage: UNK, 3X/DAY
  11. ATIVAN [Concomitant]
     Indication: EMOTIONAL DISORDER
     Dosage: 1 MG, DAILY
     Route: 048
  12. PREMARIN [Concomitant]
     Dosage: 0.3 MG, DAILY
  13. ATROVENT [Concomitant]
     Indication: BRONCHITIS
     Dosage: UNK
     Route: 055
  14. NITROSTAT [Suspect]
     Indication: CHEST PAIN
     Route: 060
  15. CALCIUM [Concomitant]
     Dosage: 600 MG, 2X/DAY

REACTIONS (17)
  - MYOCARDIAL INFARCTION [None]
  - PARAESTHESIA [None]
  - SKIN HAEMORRHAGE [None]
  - MALAISE [None]
  - HEADACHE [None]
  - HYPERLIPIDAEMIA [None]
  - BACK INJURY [None]
  - SKIN DISCOLOURATION [None]
  - URTICARIA [None]
  - THERMAL BURN [None]
  - DRY SKIN [None]
  - HYPOAESTHESIA [None]
  - PAIN [None]
  - PRURITUS [None]
  - SCAB [None]
  - MIGRAINE [None]
  - SENSATION OF HEAVINESS [None]
